FAERS Safety Report 5154737-X (Version None)
Quarter: 2006Q4

REPORT INFORMATION
  Report Type: 
  Country: None (occurrence: None)
  Receive Date: 20061115
  Receipt Date: 20061115
  Transmission Date: 20070319
  Serious: Yes (Hospitalization, Other)
  Sender: FDA-Public Use
  Company Number: None

PATIENT
  Age: 40 Year
  Weight: 86.1834 kg

DRUGS (1)
  1. OMEPRAZOLE [Suspect]
     Indication: GASTROOESOPHAGEAL REFLUX DISEASE
     Dosage: 20 MG TWICE A DAY PO
     Route: 048
     Dates: start: 20051201, end: 20061110

REACTIONS (17)
  - ABDOMINAL PAIN [None]
  - BARRETT'S OESOPHAGUS [None]
  - CHEST PAIN [None]
  - CHILLS [None]
  - CONVULSION [None]
  - DYSPEPSIA [None]
  - DYSPNOEA [None]
  - EROSIVE OESOPHAGITIS [None]
  - HIATUS HERNIA [None]
  - HYPERHIDROSIS [None]
  - MALAISE [None]
  - MUSCLE TWITCHING [None]
  - OESOPHAGEAL SPASM [None]
  - PANIC ATTACK [None]
  - PHARMACEUTICAL PRODUCT COMPLAINT [None]
  - RESPIRATORY DISORDER [None]
  - ULCER [None]
